FAERS Safety Report 12964188 (Version 3)
Quarter: 2017Q1

REPORT INFORMATION
  Report Type: Spontaneous
  Country: DE (occurrence: DE)
  Receive Date: 20161122
  Receipt Date: 20170328
  Transmission Date: 20170428
  Serious: Yes (Hospitalization, Other)
  Sender: FDA-Public Use
  Company Number: DE-OTSUKA-2015_014392

PATIENT
  Age: 35 Year
  Sex: Male

DRUGS (10)
  1. JINARC [Suspect]
     Active Substance: TOLVAPTAN
     Dosage: 45 MG, QD (IN MORNING)
     Route: 065
     Dates: start: 2015, end: 201602
  2. JINARC [Suspect]
     Active Substance: TOLVAPTAN
     Dosage: 60 MG, QD (IN MORNING)
     Route: 065
  3. JINARC [Suspect]
     Active Substance: TOLVAPTAN
     Dosage: 30 MG, QD (IN EVENING)
     Route: 065
     Dates: start: 201604, end: 2016
  4. JINARC [Suspect]
     Active Substance: TOLVAPTAN
     Dosage: 60 MG, QD (IN MORNING)
     Route: 065
     Dates: start: 201604, end: 2016
  5. JINARC [Suspect]
     Active Substance: TOLVAPTAN
     Indication: CONGENITAL CYSTIC KIDNEY DISEASE
     Dosage: 60 MG, QD (IN MORNING)
     Route: 065
  6. JINARC [Suspect]
     Active Substance: TOLVAPTAN
     Dosage: 90 MG, QD (IN MORNING)
     Route: 065
  7. JINARC [Suspect]
     Active Substance: TOLVAPTAN
     Dosage: 30 MG, QD (IN EVENING)
     Route: 065
  8. JINARC [Suspect]
     Active Substance: TOLVAPTAN
     Dosage: 30 MG, QD (IN EVENING)
     Route: 065
  9. JINARC [Suspect]
     Active Substance: TOLVAPTAN
     Dosage: 30 MG, QD (IN EVENING)
     Route: 065
  10. JINARC [Suspect]
     Active Substance: TOLVAPTAN
     Dosage: 15MG, QD (IN EVENING)
     Route: 065
     Dates: start: 2015, end: 201602

REACTIONS (9)
  - Inflammation [Not Recovered/Not Resolved]
  - Loss of consciousness [Recovered/Resolved]
  - Presyncope [Recovered/Resolved]
  - Blood creatine abnormal [Unknown]
  - Pollakiuria [Not Recovered/Not Resolved]
  - Colitis ulcerative [Recovering/Resolving]
  - Therapy cessation [Unknown]
  - Polydipsia [Recovering/Resolving]
  - Thirst [Recovering/Resolving]

NARRATIVE: CASE EVENT DATE: 20151101
